FAERS Safety Report 24107726 (Version 1)
Quarter: 2024Q3

REPORT INFORMATION
  Report Type: Spontaneous
  Country: US (occurrence: US)
  Receive Date: 20240718
  Receipt Date: 20240718
  Transmission Date: 20241017
  Serious: Yes (Disabling)
  Sender: Kilitch Healthcare
  Company Number: US-KHC-000028

PATIENT
  Age: 60 Year
  Sex: Male

DRUGS (4)
  1. POLYVINYL ALCOHOL [Suspect]
     Active Substance: POLYVINYL ALCOHOL
     Indication: Eye lubrication therapy
     Dosage: 1 DROP IN EACH EYE EVERYDAY, AND SOMETIMES HE WOULD USE THE PRODUCT 2 TIMES A DAY
     Route: 065
     Dates: start: 20220429, end: 20220603
  2. POLYVINYL ALCOHOL [Suspect]
     Active Substance: POLYVINYL ALCOHOL
     Indication: Eye lubrication therapy
     Dosage: 1 DROP IN EACH EYE EVERYDAY, AND SOMETIMES HE WOULD USE THE PRODUCT 2 TIMES A DAY
     Route: 065
     Dates: start: 20220612, end: 20220820
  3. POLYVINYL ALCOHOL [Suspect]
     Active Substance: POLYVINYL ALCOHOL
     Indication: Eye lubrication therapy
     Dosage: 1 DROP IN EACH EYE EVERYDAY, AND SOMETIMES HE WOULD USE THE PRODUCT 2 TIMES A DAY
     Route: 065
     Dates: start: 20220826, end: 20221030
  4. POLYVINYL ALCOHOL [Suspect]
     Active Substance: POLYVINYL ALCOHOL
     Indication: Eye lubrication therapy
     Dosage: 1 DROP IN EACH EYE EVERYDAY, AND SOMETIMES HE WOULD USE THE PRODUCT 2 TIMES A DAY
     Route: 065
     Dates: start: 20221129, end: 20230130

REACTIONS (4)
  - Vision blurred [Recovering/Resolving]
  - Eye irritation [Recovering/Resolving]
  - Eye pruritus [Recovering/Resolving]
  - Recalled product [Unknown]

NARRATIVE: CASE EVENT DATE: 20230701
